FAERS Safety Report 7023976-5 (Version None)
Quarter: 2010Q4

REPORT INFORMATION
  Report Type: 
  Country: None (occurrence: None)
  Receive Date: 20101001
  Receipt Date: 20100917
  Transmission Date: 20110411
  Serious: Yes (Hospitalization)
  Sender: FDA-Public Use
  Company Number: GB-BAUSCH-2010BL005234

PATIENT
  Sex: Male

DRUGS (5)
  1. TROPICAMIDE [Suspect]
     Indication: OPHTHALMOLOGICAL EXAMINATION
     Route: 047
     Dates: start: 20100624, end: 20100624
  2. ASPIRIN [Concomitant]
     Indication: PRODUCT USED FOR UNKNOWN INDICATION
  3. NOVOMIX [Concomitant]
     Indication: PRODUCT USED FOR UNKNOWN INDICATION
  4. PERINDOPRIL [Concomitant]
     Indication: PRODUCT USED FOR UNKNOWN INDICATION
  5. SIMVASTATIN [Concomitant]
     Indication: PRODUCT USED FOR UNKNOWN INDICATION

REACTIONS (4)
  - APHASIA [None]
  - MUSCULAR WEAKNESS [None]
  - SYNCOPE [None]
  - VIITH NERVE PARALYSIS [None]
